FAERS Safety Report 18513145 (Version 5)
Quarter: 2022Q1

REPORT INFORMATION
  Report Type: Other
  Country: US (occurrence: None)
  Receive Date: 20201117
  Receipt Date: 20220323
  Transmission Date: 20220423
  Serious: Yes (Hospitalization, Other)
  Sender: FDA-Public Use
  Company Number: US-ROCHE-2700133

PATIENT
  Sex: Female
  Weight: 49.486 kg

DRUGS (15)
  1. RITUXAN [Suspect]
     Active Substance: RITUXIMAB
     Indication: Neuromyelitis optica spectrum disorder
     Route: 042
     Dates: start: 2009
  2. RITUXAN [Suspect]
     Active Substance: RITUXIMAB
     Indication: Multiple sclerosis
     Dosage: ONE EVERY 6 TO 11 MONTHS, DATE OF TREATMENT UPDATED. 28/MAY/2021, 24/NOV/2020
     Route: 042
     Dates: start: 2008
  3. ENSPRYNG [Suspect]
     Active Substance: SATRALIZUMAB-MWGE
     Indication: Neuromyelitis optica spectrum disorder
     Dosage: ONGOING
     Route: 058
     Dates: start: 202011
  4. VALIUM [Suspect]
     Active Substance: DIAZEPAM
     Indication: Product used for unknown indication
     Route: 065
  5. SOLIRIS [Concomitant]
     Active Substance: ECULIZUMAB
  6. HIZENTRA [Concomitant]
     Active Substance: HUMAN IMMUNOGLOBULIN G
     Indication: Hypogammaglobulinaemia
     Dosage: ONE DOSE EVERY OTHER WEEK
     Route: 058
     Dates: start: 2016
  7. GABAPENTIN [Concomitant]
     Active Substance: GABAPENTIN
     Indication: Paraesthesia
     Route: 048
     Dates: start: 2015
  8. GABAPENTIN [Concomitant]
     Active Substance: GABAPENTIN
     Indication: Pain
  9. LYRICA [Concomitant]
     Active Substance: PREGABALIN
     Indication: Paraesthesia
     Route: 048
     Dates: start: 2007, end: 2015
  10. LYRICA [Concomitant]
     Active Substance: PREGABALIN
     Indication: Hypoaesthesia
  11. ZOFRAN [Concomitant]
     Active Substance: ONDANSETRON HYDROCHLORIDE
     Indication: Nausea
     Dosage: ONE AS NEEDED FOR NAUSEA
     Route: 048
     Dates: start: 2007
  12. XANAX [Concomitant]
     Active Substance: ALPRAZOLAM
     Indication: Anxiety
     Dosage: ONE AS NEEDED FOR ANXIETY
     Route: 048
     Dates: start: 2007
  13. DULOXETINE [Concomitant]
     Active Substance: DULOXETINE
     Indication: Paraesthesia
     Route: 048
     Dates: start: 2007, end: 2020
  14. DULOXETINE [Concomitant]
     Active Substance: DULOXETINE
     Indication: Pain
     Route: 048
     Dates: start: 2020
  15. PREDNISONE [Concomitant]
     Active Substance: PREDNISONE
     Dosage: ONGOING

REACTIONS (26)
  - Upper respiratory tract infection [Unknown]
  - Gastric infection [Recovered/Resolved with Sequelae]
  - Abdominal pain [Recovered/Resolved]
  - Appendicitis [Recovered/Resolved with Sequelae]
  - Colitis microscopic [Not Recovered/Not Resolved]
  - White blood cell count increased [Recovered/Resolved]
  - Sepsis [Recovered/Resolved]
  - Blood immunoglobulin G decreased [Unknown]
  - Condition aggravated [Unknown]
  - Blood immunoglobulin G decreased [Recovered/Resolved]
  - Vein disorder [Unknown]
  - Asthenia [Unknown]
  - Weight decreased [Unknown]
  - B-lymphocyte count decreased [Unknown]
  - Hypothyroidism [Not Recovered/Not Resolved]
  - Osteoporosis [Not Recovered/Not Resolved]
  - Stress [Unknown]
  - Illness [Unknown]
  - Off label use [Unknown]
  - Pyrexia [Recovered/Resolved]
  - Tooth disorder [Not Recovered/Not Resolved]
  - Urinary incontinence [Recovered/Resolved]
  - Depression [Recovered/Resolved]
  - Sleep disorder [Recovered/Resolved]
  - Weight decreased [Not Recovered/Not Resolved]
  - Hypoaesthesia [Not Recovered/Not Resolved]

NARRATIVE: CASE EVENT DATE: 20080101
